FAERS Safety Report 4550962-7 (Version None)
Quarter: 2004Q4

REPORT INFORMATION
  Report Type: 
  Country: None (occurrence: None)
  Receive Date: 20041217
  Receipt Date: 20040910
  Transmission Date: 20050328
  Serious: No
  Sender: FDA-Public Use
  Company Number: 2004-BP-08225BP

PATIENT
  Age: 82 Year
  Sex: Female

DRUGS (9)
  1. SPIRIVA [Suspect]
     Indication: ASTHMA
     Dosage: 18 MCG (18 MCG), IH
     Route: 055
     Dates: start: 20040714
  2. ADVAIR (SERETIDE MITE) [Concomitant]
  3. HYDROCHLOROTHIAZIDE [Concomitant]
  4. LIPITOR [Concomitant]
  5. AZOPT [Concomitant]
  6. TIM-OPTHAL (TIMILOL MALEATE) [Concomitant]
  7. ATACAND [Concomitant]
  8. SPIRIVA [Suspect]
     Dosage: 36 MCG (18 MCG, 1 PUFF IN THE AM AND 1 PUFF IN THE PM), IH
     Route: 055
     Dates: start: 20040617, end: 20040713
  9. ADVAIR DISKUS 100/50 [Suspect]

REACTIONS (5)
  - FATIGUE [None]
  - HALO VISION [None]
  - HEADACHE [None]
  - VISION BLURRED [None]
  - VISUAL ACUITY REDUCED [None]
